FAERS Safety Report 15615565 (Version 1)
Quarter: 2018Q4

REPORT INFORMATION
  Report Type: Spontaneous
  Country: US (occurrence: US)
  Receive Date: 20181114
  Receipt Date: 20181114
  Transmission Date: 20190205
  Serious: Yes (Other)
  Sender: FDA-Public Use
  Company Number: US-TEVA-814083USA

PATIENT
  Age: 43 Year
  Sex: Female

DRUGS (3)
  1. LEVOTHYROXINE. [Concomitant]
     Active Substance: LEVOTHYROXINE
  2. ESTRADIOL. [Suspect]
     Active Substance: ESTRADIOL
     Indication: HORMONE REPLACEMENT THERAPY
     Route: 065
  3. LIOTHYRONINE [Concomitant]
     Active Substance: LIOTHYRONINE

REACTIONS (4)
  - Throat tightness [Unknown]
  - Hypersensitivity [Unknown]
  - Skin discolouration [Recovering/Resolving]
  - Product dose omission [Unknown]
